FAERS Safety Report 6899242-5 (Version None)
Quarter: 2010Q3

REPORT INFORMATION
  Report Type: 
  Country: None (occurrence: None)
  Receive Date: 20100802
  Receipt Date: 20080310
  Transmission Date: 20110219
  Serious: No
  Sender: FDA-Public Use
  Company Number: US-PFIZER INC-2005141143

PATIENT
  Sex: Male
  Weight: 70.31 kg

DRUGS (10)
  1. LYRICA [Suspect]
     Indication: DIABETIC NEUROPATHY
     Route: 048
     Dates: start: 20051008
  2. CYMBALTA [Concomitant]
     Route: 065
     Dates: end: 20051001
  3. CAPTOPRIL [Concomitant]
     Route: 065
  4. GLYBURIDE [Concomitant]
     Route: 065
  5. ALLOPURINOL [Concomitant]
     Route: 065
  6. DICLOFENAC [Concomitant]
     Route: 065
  7. GLUCOPHAGE [Concomitant]
     Route: 065
  8. MONTELUKAST SODIUM [Concomitant]
     Route: 065
  9. HYTRIN [Concomitant]
     Route: 065
  10. MULTI-VITAMINS [Concomitant]
     Route: 065

REACTIONS (3)
  - BLOOD GLUCOSE INCREASED [None]
  - DIZZINESS [None]
  - SOMNOLENCE [None]
